FAERS Safety Report 7886621-2 (Version None)
Quarter: 2011Q4

REPORT INFORMATION
  Report Type: 
  Country: None (occurrence: None)
  Receive Date: 20111102
  Receipt Date: 20110708
  Transmission Date: 20120403
  Serious: No
  Sender: FDA-Public Use
  Company Number: US-AMGEN-USASP2011034872

PATIENT
  Age: 88 Year
  Sex: Female

DRUGS (2)
  1. ENBREL [Suspect]
     Indication: RHEUMATOID ARTHRITIS
     Dosage: 50 MG, QWK
     Dates: start: 20080715
  2. COUMADIN [Concomitant]

REACTIONS (3)
  - FALL [None]
  - WOUND HAEMORRHAGE [None]
  - OPEN WOUND [None]
